FAERS Safety Report 9006786 (Version 5)
Quarter: 2014Q1

REPORT INFORMATION
  Report Type: Spontaneous
  Country: US (occurrence: US)
  Receive Date: 20120517
  Receipt Date: 20140306
  Transmission Date: 20141002
  Serious: Yes (Other)
  Sender: FDA-Public Use
  Company Number: PHHY2011US16905

PATIENT
  Age: 50 Year
  Sex: Female

DRUGS (20)
  1. SANDOSTATIN LAR DEPOT [Suspect]
     Indication: CARCINOID SYNDROME
     Dosage: 20 MG, UNK
     Dates: start: 2003
  2. SANDOSTATIN LAR DEPOT [Suspect]
     Dosage: 30 MG, UNK
  3. SANDOSTATIN LAR DEPOT [Suspect]
     Dosage: 30 MG, TIW
  4. SANDOSTATIN LAR DEPOT [Suspect]
     Dosage: 30 MG, EVERY 2 WEEK
  5. SANDOSTATIN LAR DEPOT [Suspect]
     Dosage: 30 MG, QW
  6. SANDOSTATIN [Suspect]
     Indication: CARCINOID SYNDROME
     Dosage: UNK UKN, UNK
     Route: 058
     Dates: start: 2007
  7. SANDOSTATIN [Suspect]
     Dosage: 1000 UG/ML, UNK
     Route: 058
  8. SANDOSTATIN [Suspect]
     Dosage: 12.5 U, UNK
     Route: 058
  9. SANDOSTATIN [Suspect]
     Dosage: 11 U, UNK
  10. SANDOSTATIN [Suspect]
     Dosage: 10 U, UNK
  11. SANDOSTATIN [Suspect]
     Dosage: 12.5 U, UNK
  12. SANDOSTATIN [Suspect]
     Dosage: UNK
  13. NOVOCAIN [Suspect]
     Dosage: UNK UKN, UNK
  14. LASIX [Concomitant]
     Dosage: UNK UKN, UNK
  15. BABY ASPIRIN [Concomitant]
     Dosage: UNK UKN, UNK
  16. LYRICA [Concomitant]
     Dosage: UNK UKN, UNK
  17. DIAZEPAM [Concomitant]
     Dosage: UNK UKN, UNK
  18. FENTANYL PATCHES [Concomitant]
     Dosage: UNK UKN, UNK
  19. HYDROCHLOROTHIAZIDE [Concomitant]
     Dosage: UNK UKN, UNK
  20. ULTRAM [Concomitant]
     Dosage: UNK UKN, UNK

REACTIONS (24)
  - Myocardial infarction [Recovered/Resolved]
  - Paralysis [Recovered/Resolved]
  - Malignant neoplasm progression [Not Recovered/Not Resolved]
  - Atrophy [Unknown]
  - Injection site scar [Unknown]
  - Drug level decreased [Recovering/Resolving]
  - Malaise [Unknown]
  - Psychomotor hyperactivity [Unknown]
  - Blood pressure decreased [Unknown]
  - Hypoaesthesia [Recovered/Resolved]
  - Wrong technique in drug usage process [Unknown]
  - Injection site mass [Unknown]
  - Flushing [Unknown]
  - General physical health deterioration [Unknown]
  - Pain [Unknown]
  - Erythema [Unknown]
  - Drug dispensing error [Unknown]
  - Serum serotonin decreased [Unknown]
  - Quality of life decreased [Unknown]
  - Carcinoembryonic antigen increased [Unknown]
  - Heart rate increased [Unknown]
  - Abdominal pain [Unknown]
  - Diarrhoea [Unknown]
  - Drug ineffective [Unknown]
